FAERS Safety Report 6202646-7 (Version None)
Quarter: 2009Q2

REPORT INFORMATION
  Report Type: 
  Country: None (occurrence: None)
  Receive Date: 20090526
  Receipt Date: 20090520
  Transmission Date: 20091009
  Serious: Yes (Hospitalization)
  Sender: FDA-Public Use
  Company Number: US-BAYER-200910656BCC

PATIENT
  Age: 61 Year
  Sex: Male
  Weight: 75 kg

DRUGS (4)
  1. ASPIRIN [Suspect]
     Indication: STROKE IN EVOLUTION
     Dosage: TOTAL DAILY DOSE: 975 MG  UNIT DOSE: 325 MG
     Route: 048
     Dates: start: 20081231
  2. ATENOLOL [Concomitant]
  3. SPIRONOLACTONE [Concomitant]
  4. MIRTAZAPINE [Concomitant]

REACTIONS (2)
  - EMBOLISM [None]
  - ISCHAEMIC STROKE [None]
